FAERS Safety Report 23169735 (Version 1)
Quarter: 2023Q4

REPORT INFORMATION
  Report Type: Report from Study
  Country: CN (occurrence: CN)
  Receive Date: 20231110
  Receipt Date: 20231110
  Transmission Date: 20240109
  Serious: Yes (Other)
  Sender: FDA-Public Use
  Company Number: CN-VKT-000293

PATIENT
  Age: 7 Month
  Sex: Male

DRUGS (1)
  1. LEVETIRACETAM [Suspect]
     Active Substance: LEVETIRACETAM
     Indication: Partial seizures with secondary generalisation
     Route: 065

REACTIONS (2)
  - Change in seizure presentation [Recovered/Resolved]
  - Drug ineffective [Unknown]
